FAERS Safety Report 20163292 (Version 1)
Quarter: 2021Q4

REPORT INFORMATION
  Report Type: Spontaneous
  Country: CN (occurrence: CN)
  Receive Date: 20211209
  Receipt Date: 20211209
  Transmission Date: 20220303
  Serious: Yes (Hospitalization)
  Sender: FDA-Public Use
  Company Number: CN-BoehringerIngelheim-2021-BI-141839

PATIENT
  Age: 55 Year
  Sex: Male
  Weight: 68.000 kg

DRUGS (6)
  1. CARBOPLATIN [Suspect]
     Active Substance: CARBOPLATIN
     Indication: Neoplasm malignant
     Route: 042
     Dates: start: 20210522, end: 20210522
  2. PEMETREXED DISODIUM [Suspect]
     Active Substance: PEMETREXED DISODIUM
     Indication: Neoplasm malignant
     Route: 042
     Dates: start: 20210522, end: 20210522
  3. GILOTRIF [Suspect]
     Active Substance: AFATINIB
     Indication: Neoplasm
     Route: 048
     Dates: start: 20210428, end: 20210615
  4. UBENIMEX [Concomitant]
     Active Substance: UBENIMEX
     Indication: Immunomodulatory therapy
     Route: 048
     Dates: start: 20210524, end: 20210531
  5. PALONOSETRON HYDROCHLORIDE [Concomitant]
     Active Substance: PALONOSETRON HYDROCHLORIDE
     Indication: Vomiting
     Route: 042
     Dates: start: 20210522, end: 20210522
  6. DEXAMETHASONE ACETATE [Concomitant]
     Active Substance: DEXAMETHASONE ACETATE
     Indication: Vomiting
     Route: 048
     Dates: start: 20210521, end: 20210524

REACTIONS (2)
  - Neutrophil count decreased [Recovered/Resolved]
  - Off label use [Unknown]

NARRATIVE: CASE EVENT DATE: 20210612
